FAERS Safety Report 12800343 (Version 1)
Quarter: 2016Q3

REPORT INFORMATION
  Report Type: Spontaneous
  Country: US (occurrence: US)
  Receive Date: 20160930
  Receipt Date: 20160930
  Transmission Date: 20161109
  Serious: Yes (Other)
  Sender: FDA-Public Use
  Company Number: US-SAOL THERAPEUTICS-2016SAO00731

PATIENT
  Sex: Female

DRUGS (2)
  1. DILAUDID [Suspect]
     Active Substance: HYDROMORPHONE HYDROCHLORIDE
     Dosage: UNKNOWN
     Route: 037
  2. BACLOFEN. [Suspect]
     Active Substance: BACLOFEN
     Indication: SPINAL PAIN
     Dosage: UNKNOWN
     Route: 037

REACTIONS (11)
  - Abasia [Unknown]
  - Overdose [Unknown]
  - Back pain [Unknown]
  - Hallucination [Unknown]
  - Off label use [Unknown]
  - Muscle spasms [Unknown]
  - Gait disturbance [Unknown]
  - Road traffic accident [Unknown]
  - Tremor [Unknown]
  - Disorientation [Unknown]
  - Hyperhidrosis [Unknown]

NARRATIVE: CASE EVENT DATE: 201508
